FAERS Safety Report 4551376-6 (Version None)
Quarter: 2005Q1

REPORT INFORMATION
  Report Type: 
  Country: None (occurrence: None)
  Receive Date: 20050107
  Receipt Date: 20041227
  Transmission Date: 20050727
  Serious: Yes (Death)
  Sender: FDA-Public Use
  Company Number: 211350

PATIENT
  Age: 66 Year
  Sex: Female

DRUGS (12)
  1. RITUXAN [Suspect]
     Indication: DIFFUSE LARGE B-CELL LYMPHOMA
     Dosage: 550 MG, INTRAVENOUS
     Route: 042
     Dates: start: 20021010, end: 20040224
  2. PIRARUBICIN HYDROCHLORIDE (PIRARUBICIN) [Suspect]
     Indication: DIFFUSE LARGE B-CELL LYMPHOMA
     Dosage: 60 MG, INTRAVENOUS
     Route: 042
     Dates: start: 20020827, end: 20020917
  3. VINCRISTINE SULFATE [Suspect]
     Indication: DIFFUSE LARGE B-CELL LYMPHOMA
     Dosage: 1.7 MG, INTRAVENOUS
     Route: 042
     Dates: start: 20020827, end: 20040326
  4. PREDNISONE [Suspect]
     Indication: DIFFUSE LARGE B-CELL LYMPHOMA
     Dosage: 60 MG, ORAL
     Route: 048
     Dates: start: 20020827, end: 20040904
  5. CYCLOPHOSPHAMIDE [Suspect]
     Indication: DIFFUSE LARGE B-CELL LYMPHOMA
     Dosage: 1000 MG, INTRAVENOUS
     Route: 042
     Dates: start: 20020827, end: 20030309
  6. DOXORUBICIN (DOXORUBICIN HYDROCHLLORIDE, DOXORUBICIN) [Suspect]
     Indication: DIFFUSE LARGE B-CELL LYMPHOMA
     Dosage: 14 MG, INTRAVENOUS
     Route: 042
     Dates: start: 20021011, end: 20040326
  7. ETOPOSIDE [Suspect]
     Indication: DIFFUSE LARGE B-CELL LYMPHOMA
     Dosage: 70 MG, INTRAVENOUS
     Route: 042
     Dates: start: 20021011, end: 20040904
  8. DEXAMETHASONE [Suspect]
     Indication: DIFFUSE LARGE B-CELL LYMPHOMA
     Dosage: 40 MG, INTRAVENOUS
     Route: 040
     Dates: start: 20030107, end: 20040228
  9. CARBOPLATIN [Suspect]
     Indication: DIFFUSE LARGE B-CELL LYMPHOMA
     Dosage: 375 MG, INTRAVENOUS
     Route: 042
     Dates: start: 20021109, end: 20040327
  10. CYTARABINE [Suspect]
     Indication: DIFFUSE LARGE B-CELL LYMPHOMA
     Dosage: 2000 MG, INTRAVENOUS
     Route: 042
     Dates: start: 20030108, end: 20030109
  11. SOBUZOXANE(SOBUZOXANE) [Suspect]
     Indication: DIFFUSE LARGE B-CELL LYMPHOMA
     Dosage: 400 MG, INTRAVENOUS
     Route: 042
     Dates: start: 20030423, end: 20040904
  12. IFOSFAMIDE [Concomitant]

REACTIONS (4)
  - PROGRESSIVE MULTIFOCAL LEUKOENCEPHALOPATHY [None]
  - QUADRIPLEGIA [None]
  - RESPIRATORY FAILURE [None]
  - VIRAL TEST POSITIVE [None]
